FAERS Safety Report 20855635 (Version 1)
Quarter: 2022Q2

REPORT INFORMATION
  Report Type: Spontaneous
  Country: ES (occurrence: ES)
  Receive Date: 20220520
  Receipt Date: 20220520
  Transmission Date: 20220721
  Serious: Yes (Other)
  Sender: FDA-Public Use
  Company Number: None

PATIENT
  Age: 69 Year
  Sex: Female

DRUGS (1)
  1. FENTANYL [Suspect]
     Active Substance: FENTANYL
     Indication: Osteoarthritis
     Dosage: 12 MICROGRAMS/HOUR TRANSDERMAL PATCHES EFG, 5 PATCHES, UNIT DOSE:1 DF, FREQUENCY TIME : 72 HRS
     Route: 062
     Dates: start: 2022

REACTIONS (2)
  - Paraesthesia [Recovered/Resolved]
  - Tongue oedema [Recovered/Resolved]

NARRATIVE: CASE EVENT DATE: 20220223
